FAERS Safety Report 6523861-9 (Version None)
Quarter: 2009Q4

REPORT INFORMATION
  Report Type: 
  Country: None (occurrence: None)
  Receive Date: 20091231
  Receipt Date: 20091225
  Transmission Date: 20100525
  Serious: Yes (Life-Threatening, Hospitalization, Other)
  Sender: FDA-Public Use
  Company Number: JP-JNJFOC-20091207040

PATIENT
  Age: 81 Year
  Sex: Male

DRUGS (4)
  1. FLORID ORAL GEL [Suspect]
     Route: 048
  2. FLORID ORAL GEL [Suspect]
     Indication: ORAL CANDIDIASIS
     Route: 048
  3. WARFARIN [Interacting]
     Indication: DRUG USE FOR UNKNOWN INDICATION
     Route: 065
  4. ALLOPURINOL [Interacting]
     Indication: HYPERURICAEMIA
     Route: 065

REACTIONS (8)
  - ATRIOVENTRICULAR BLOCK [None]
  - BLOOD POTASSIUM INCREASED [None]
  - CARDIOGENIC SHOCK [None]
  - DRUG INTERACTION [None]
  - HAEMOGLOBIN DECREASED [None]
  - HAEMOPTYSIS [None]
  - HYPOVOLAEMIC SHOCK [None]
  - PROTHROMBIN TIME PROLONGED [None]
